FAERS Safety Report 11549294 (Version 1)
Quarter: 2015Q3

REPORT INFORMATION
  Report Type: Spontaneous
  Country: US (occurrence: US)
  Receive Date: 20150924
  Receipt Date: 20150924
  Transmission Date: 20151125
  Serious: No
  Sender: FDA-Public Use
  Company Number: US-INCYTE CORPORATION-2015IN003014

PATIENT
  Age: 81 Year
  Sex: Female

DRUGS (3)
  1. JAKAFI [Suspect]
     Active Substance: RUXOLITINIB
     Indication: MYELOFIBROSIS
     Dosage: 20 MG, BID
     Route: 048
     Dates: start: 20150427
  2. IRON [Suspect]
     Active Substance: IRON
     Dosage: NOT SPECIFIED
     Route: 048
  3. HYDREA [Suspect]
     Active Substance: HYDROXYUREA
     Dosage: NOT SPECIFIED

REACTIONS (2)
  - Faeces discoloured [Unknown]
  - Skin ulcer [Unknown]

NARRATIVE: CASE EVENT DATE: 20140601
